FAERS Safety Report 4712375-4 (Version None)
Quarter: 2005Q3

REPORT INFORMATION
  Report Type: 
  Country: None (occurrence: None)
  Receive Date: 20050711
  Receipt Date: 20050629
  Transmission Date: 20060218
  Serious: Yes (Other)
  Sender: FDA-Public Use
  Company Number: 2005095400

PATIENT
  Age: 37 Year
  Sex: Female
  Weight: 54.8852 kg

DRUGS (4)
  1. ZOLOFT [Suspect]
     Indication: ILL-DEFINED DISORDER
     Dosage: 50 MG
     Dates: start: 20040601, end: 20041001
  2. MORPHINE [Suspect]
     Indication: ILL-DEFINED DISORDER
     Dates: start: 20040101, end: 20041001
  3. ACTIQ [Suspect]
     Indication: PAIN
     Dosage: 1600 MCG (800 MCG, 2 IN 1 D), OTHER
     Dates: start: 20040601
  4. TRILEPTAL [Suspect]
     Indication: ILL-DEFINED DISORDER
     Dates: end: 20041001

REACTIONS (5)
  - DRUG EXPOSURE DURING PREGNANCY [None]
  - PRE-ECLAMPSIA [None]
  - PREGNANCY [None]
  - PREMATURE LABOUR [None]
  - STILLBIRTH [None]
